FAERS Safety Report 13843654 (Version 3)
Quarter: 2017Q3

REPORT INFORMATION
  Report Type: Report from Study
  Country: US (occurrence: US)
  Receive Date: 20170808
  Receipt Date: 20170918
  Transmission Date: 20171127
  Serious: No
  Sender: FDA-Public Use
  Company Number: PHEH2017US024692

PATIENT
  Age: 39 Year
  Sex: Male
  Weight: 80.29 kg

DRUGS (2)
  1. GLEEVEC [Suspect]
     Active Substance: IMATINIB MESYLATE
     Dosage: 100 MG, UNK
     Route: 048
     Dates: start: 20150415
  2. GLEEVEC [Suspect]
     Active Substance: IMATINIB MESYLATE
     Indication: MYELOPROLIFERATIVE NEOPLASM
     Dosage: 400 MG, QD
     Route: 048
     Dates: start: 201504

REACTIONS (2)
  - Oedema peripheral [Recovered/Resolved]
  - Wheezing [Unknown]

NARRATIVE: CASE EVENT DATE: 201504
